FAERS Safety Report 16311714 (Version 1)
Quarter: 2019Q2

REPORT INFORMATION
  Report Type: Report from Study
  Country: FR (occurrence: FR)
  Receive Date: 20190514
  Receipt Date: 20190514
  Transmission Date: 20190711
  Serious: Yes (Death, Hospitalization, Other)
  Sender: FDA-Public Use
  Company Number: FR-JAZZ-2019-FR-000826

PATIENT
  Age: 1 Year
  Sex: Male
  Weight: 11.3 kg

DRUGS (3)
  1. DEFITELIO [Suspect]
     Active Substance: DEFIBROTIDE SODIUM
     Dosage: 25 MG/KG, QD (300 MG/KG, BODY WEIGHT)
     Dates: start: 20160722, end: 20160829
  2. DEFITELIO [Suspect]
     Active Substance: DEFIBROTIDE SODIUM
     Dosage: 13.04 MG/KG, QD
     Dates: end: 20151101
  3. DEFITELIO [Suspect]
     Active Substance: DEFIBROTIDE SODIUM
     Indication: PROPHYLAXIS
     Dosage: 26.09 MG/KG, QD
     Dates: start: 20151024, end: 20151029

REACTIONS (20)
  - Chronic myelomonocytic leukaemia [Fatal]
  - Hypoalbuminaemia [Not Recovered/Not Resolved]
  - Parvovirus infection [Not Recovered/Not Resolved]
  - Haemolysis [Not Recovered/Not Resolved]
  - Hepatosplenomegaly [Not Recovered/Not Resolved]
  - Epstein-Barr virus test positive [Not Recovered/Not Resolved]
  - Lymphoproliferative disorder [Fatal]
  - Hypogammaglobulinaemia [Not Recovered/Not Resolved]
  - Aspergillus infection [Unknown]
  - Neoplasm [Not Recovered/Not Resolved]
  - Cytomegalovirus infection [Not Recovered/Not Resolved]
  - Staphylococcal infection [Not Recovered/Not Resolved]
  - Graft versus host disease in liver [Unknown]
  - Graft versus host disease in gastrointestinal tract [Unknown]
  - Disease progression [Fatal]
  - Herpes virus infection [Not Recovered/Not Resolved]
  - Graft versus host disease in skin [Unknown]
  - Enterobacter infection [Not Recovered/Not Resolved]
  - Cholestasis [Not Recovered/Not Resolved]
  - Reticulocytosis [Unknown]

NARRATIVE: CASE EVENT DATE: 20151106
